FAERS Safety Report 20054535 (Version 11)
Quarter: 2022Q3

REPORT INFORMATION
  Report Type: Spontaneous
  Country: US (occurrence: US)
  Receive Date: 20211110
  Receipt Date: 20220930
  Transmission Date: 20221027
  Serious: Yes (Hospitalization, Other)
  Sender: FDA-Public Use
  Company Number: US-SA-SAC20211108000606

PATIENT
  Age: 60 Year
  Sex: Female

DRUGS (2)
  1. DUPIXENT [Suspect]
     Active Substance: DUPILUMAB
     Indication: Dermatitis atopic
     Dosage: 600 MG, 1X
     Route: 058
     Dates: start: 202108, end: 202108
  2. DUPIXENT [Suspect]
     Active Substance: DUPILUMAB
     Dosage: 300 MG, QOW
     Route: 058

REACTIONS (11)
  - Oedematous kidney [Unknown]
  - Shoulder operation [Unknown]
  - Blood pressure abnormal [Unknown]
  - Balance disorder [Unknown]
  - Illness [Unknown]
  - Dry skin [Unknown]
  - Skin exfoliation [Unknown]
  - Alopecia [Unknown]
  - Swelling [Unknown]
  - Shoulder arthroplasty [Unknown]
  - Surgery [Unknown]
